FAERS Safety Report 10489930 (Version 2)
Quarter: 2014Q4

REPORT INFORMATION
  Report Type: Spontaneous
  Country: JP (occurrence: JP)
  Receive Date: 20141002
  Receipt Date: 20141002
  Transmission Date: 20150528
  Serious: Yes (Hospitalization, Other)
  Sender: FDA-Public Use
  Company Number: JP-CUBIST PHARMACEUTICALS, INC.-2014CBST001226

PATIENT

DRUGS (20)
  1. CEFOZOPRAN [Concomitant]
     Active Substance: CEFOZOPRAN
     Indication: ACINETOBACTER INFECTION
  2. VANCOMYCIN [Concomitant]
     Active Substance: VANCOMYCIN
     Indication: BACTERAEMIA
  3. CUBICIN [Suspect]
     Active Substance: DAPTOMYCIN
     Indication: OSTEOMYELITIS BACTERIAL
     Dosage: UNK UNK, UNK
     Route: 051
  4. MINOCYCLINE [Concomitant]
     Active Substance: MINOCYCLINE\MINOCYCLINE HYDROCHLORIDE
     Indication: BACTERAEMIA
  5. MINOCYCLINE [Concomitant]
     Active Substance: MINOCYCLINE\MINOCYCLINE HYDROCHLORIDE
     Indication: ACINETOBACTER INFECTION
  6. LATAMOXEF                          /00598802/ [Concomitant]
     Indication: STENOTROPHOMONAS INFECTION
  7. LATAMOXEF                          /00598802/ [Concomitant]
     Indication: OSTEOMYELITIS BACTERIAL
     Dosage: 1G, Q8H
     Route: 065
  8. MEROPENEM. [Concomitant]
     Active Substance: MEROPENEM
     Indication: OSTEOMYELITIS BACTERIAL
     Dosage: UNK UNK, UNK
     Route: 065
  9. CUBICIN [Suspect]
     Active Substance: DAPTOMYCIN
     Indication: STAPHYLOCOCCAL INFECTION
     Dosage: UNK UNK, UNK
     Route: 051
  10. VANCOMYCIN [Concomitant]
     Active Substance: VANCOMYCIN
     Indication: ACINETOBACTER INFECTION
  11. LEVOFLOXACIN. [Concomitant]
     Active Substance: LEVOFLOXACIN
     Indication: STENOTROPHOMONAS INFECTION
     Dosage: UNK UNK, UNK
     Route: 065
  12. LEVOFLOXACIN. [Concomitant]
     Active Substance: LEVOFLOXACIN
     Indication: ACINETOBACTER INFECTION
  13. VANCOMYCIN [Concomitant]
     Active Substance: VANCOMYCIN
     Indication: STENOTROPHOMONAS INFECTION
     Dosage: UNK UNK, UNK
     Route: 065
  14. MEROPENEM. [Concomitant]
     Active Substance: MEROPENEM
     Indication: STENOTROPHOMONAS INFECTION
     Dosage: UNK
  15. CUBICIN [Suspect]
     Active Substance: DAPTOMYCIN
     Indication: OFF LABEL USE
  16. CUBICIN [Suspect]
     Active Substance: DAPTOMYCIN
     Indication: STENOTROPHOMONAS INFECTION
  17. LEVOFLOXACIN. [Concomitant]
     Active Substance: LEVOFLOXACIN
     Indication: BACTERAEMIA
  18. CEFOZOPRAN [Concomitant]
     Active Substance: CEFOZOPRAN
     Indication: STENOTROPHOMONAS INFECTION
     Dosage: UNK UNK, UNK
     Route: 065
  19. CEFOZOPRAN [Concomitant]
     Active Substance: CEFOZOPRAN
     Indication: BACTERAEMIA
  20. MINOCYCLINE [Concomitant]
     Active Substance: MINOCYCLINE\MINOCYCLINE HYDROCHLORIDE
     Indication: STENOTROPHOMONAS INFECTION
     Dosage: UNK UNK, UNK
     Route: 065

REACTIONS (4)
  - Acinetobacter infection [Recovered/Resolved]
  - Off label use [Unknown]
  - Bacteraemia [Recovered/Resolved]
  - Stenotrophomonas infection [Recovered/Resolved]
